FAERS Safety Report 7508148-X (Version None)
Quarter: 2011Q2

REPORT INFORMATION
  Report Type: 
  Country: None (occurrence: None)
  Receive Date: 20110527
  Receipt Date: 20110516
  Transmission Date: 20111010
  Serious: Yes (Hospitalization)
  Sender: FDA-Public Use
  Company Number: US-BAYER-201032311NA

PATIENT
  Age: 39 Year
  Sex: Female
  Weight: 127 kg

DRUGS (7)
  1. YAZ [Suspect]
     Indication: POLYCYSTIC OVARIES
  2. YAZ [Suspect]
     Indication: CONTRACEPTION
     Route: 048
     Dates: start: 20070201, end: 20081007
  3. SYNTHROID [Concomitant]
     Dosage: 100 ?G, QD
  4. CARDIZEM SR [Concomitant]
  5. PAXIL [Concomitant]
  6. VITAMIN B-12 [Concomitant]
  7. METFORMIN HCL [Concomitant]
     Dosage: 500 MG, QD

REACTIONS (2)
  - EMOTIONAL DISTRESS [None]
  - PULMONARY EMBOLISM [None]
